FAERS Safety Report 21016250 (Version 3)
Quarter: 2022Q3

REPORT INFORMATION
  Report Type: Spontaneous
  Country: BR (occurrence: BR)
  Receive Date: 20220628
  Receipt Date: 20220722
  Transmission Date: 20221027
  Serious: Yes (Other)
  Sender: FDA-Public Use
  Company Number: BR-NOVARTISPH-NVSC2022BR146212

PATIENT
  Sex: Male
  Weight: 75 kg

DRUGS (5)
  1. TEGRETOL [Suspect]
     Active Substance: CARBAMAZEPINE
     Indication: Epilepsy
     Dosage: 1 DOSAGE FORM, TID (STARTED 30 YEARS AGO) AND STOPPED MORE THAN 10 YEARS AGO)
     Route: 048
  2. TEGRETOL [Suspect]
     Active Substance: CARBAMAZEPINE
     Dosage: 1 DOSAGE FORM, TID (STARTED MORE THAN 10 YEAR AGO)
     Route: 048
  3. CARBAMAZEPINE [Suspect]
     Active Substance: CARBAMAZEPINE
     Indication: Epilepsy
     Dosage: 1 DOSAGE FORM, TID (STARTED MORE THAN 10 YEARS AGO AND STOPPED AFTER 15 DAYS)
     Route: 048
  4. DEPAKENE [Suspect]
     Active Substance: VALPROIC ACID
     Indication: Epilepsy
     Dosage: 1 DOSAGE FORM, TID (STARTED MORE THAN 10 YEARS AGO AND STOPPED AFTER 15 DAYS)
     Route: 048
  5. CLOBAZAM [Concomitant]
     Active Substance: CLOBAZAM
     Indication: Epilepsy
     Dosage: 1 DOSAGE FORM, TID (STARTED MORE THAN 10 YEARS)
     Route: 048

REACTIONS (2)
  - Seizure [Unknown]
  - Product availability issue [Unknown]
